FAERS Safety Report 20289499 (Version 1)
Quarter: 2022Q1

REPORT INFORMATION
  Report Type: Spontaneous
  Country: US (occurrence: US)
  Receive Date: 20220104
  Receipt Date: 20220104
  Transmission Date: 20220424
  Serious: No
  Sender: FDA-Public Use
  Company Number: US-ELI_LILLY_AND_COMPANY-US202201000476

PATIENT

DRUGS (1)
  1. BAQSIMI [Suspect]
     Active Substance: GLUCAGON
     Indication: Product used for unknown indication
     Dosage: UNK, UNKNOWN
     Route: 045

REACTIONS (1)
  - Rhinalgia [Unknown]
